FAERS Safety Report 15901203 (Version 1)
Quarter: 2019Q1

REPORT INFORMATION
  Report Type: Spontaneous
  Country: US (occurrence: US)
  Receive Date: 20190110
  Receipt Date: 20190110
  Transmission Date: 20190417
  Serious: No
  Sender: FDA-Public Use
  Company Number: None

PATIENT
  Age: 74 Year
  Sex: Male

DRUGS (1)
  1. STIVARGA [Suspect]
     Active Substance: REGORAFENIB
     Indication: COLON CANCER
     Route: 048
     Dates: start: 20181115

REACTIONS (5)
  - Epistaxis [None]
  - Dizziness [None]
  - Blood pressure increased [None]
  - Peripheral swelling [None]
  - Hypotension [None]

NARRATIVE: CASE EVENT DATE: 20181115
